FAERS Safety Report 9814419 (Version 2)
Quarter: 2014Q1

REPORT INFORMATION
  Report Type: Spontaneous
  Country: JP (occurrence: JP)
  Receive Date: 20140113
  Receipt Date: 20140220
  Transmission Date: 20141002
  Serious: Yes (Hospitalization, Other)
  Sender: FDA-Public Use
  Company Number: PHHY2014JP003283

PATIENT
  Age: 73 Year
  Sex: Female

DRUGS (8)
  1. NEORAL [Suspect]
     Indication: APLASTIC ANAEMIA
     Dosage: 300 MG, DAILY
     Route: 048
     Dates: start: 20131120, end: 20131217
  2. NEORAL [Suspect]
     Dosage: UNK UKN, UNK
     Route: 048
     Dates: start: 20131218
  3. NEORAL [Suspect]
     Dosage: 75 MG, QD (ONCE DAILY)
     Route: 048
  4. NEORAL [Suspect]
     Dosage: 125 TO 150 MG DAILY
     Route: 048
  5. THYMOGLOBULINE [Suspect]
     Indication: APLASTIC ANAEMIA
     Dosage: UNK UKN, UNK
     Route: 048
     Dates: start: 20131209
  6. BAKTAR [Concomitant]
     Dosage: UNK UKN, UNK
     Route: 048
     Dates: start: 20131114
  7. VALTREX [Concomitant]
     Indication: HERPES ZOSTER
  8. ZETBULIN [Concomitant]

REACTIONS (2)
  - Gastrointestinal inflammation [Recovering/Resolving]
  - White blood cell count decreased [Recovered/Resolved]
